FAERS Safety Report 6597736-3 (Version None)
Quarter: 2010Q1

REPORT INFORMATION
  Report Type: 
  Country: None (occurrence: None)
  Receive Date: 20100216
  Receipt Date: 20100202
  Transmission Date: 20100710
  Serious: Yes (Other)
  Sender: FDA-Public Use
  Company Number: B0632329A

PATIENT
  Age: 33 Year
  Sex: Female

DRUGS (3)
  1. COMBIVIR [Suspect]
     Indication: ANTIVIRAL PROPHYLAXIS
     Dosage: 1 TABLET/ TWICE PER DAY/ TRANSPLACEN
     Route: 064
  2. LOPINAVIR AND RITONAVIR [Suspect]
     Indication: ANTIVIRAL PROPHYLAXIS
     Dosage: 3 TABLET/ TWICE PER DAY/ TRANSPLANCEN
     Route: 064
  3. NELFINAVIR MESYLATE [Suspect]
     Indication: ANTIVIRAL PROPHYLAXIS
     Dosage: 625 MG/ FOUR TIMES PER DAY/ TRANSP
     Route: 064

REACTIONS (2)
  - CAESAREAN SECTION [None]
  - DRUG EXPOSURE DURING PREGNANCY [None]
